FAERS Safety Report 9526202 (Version 1)
Quarter: 2013Q3

REPORT INFORMATION
  Report Type: Spontaneous
  Country: US (occurrence: US)
  Receive Date: 20130916
  Receipt Date: 20130916
  Transmission Date: 20140515
  Serious: Yes (Hospitalization)
  Sender: FDA-Public Use
  Company Number: US-PFIZER INC-2013264566

PATIENT
  Age: 83 Year
  Sex: Female

DRUGS (5)
  1. PROCARDIA XL [Suspect]
     Indication: HYPERTENSION
     Dosage: 60 MG, 1X/DAY
     Route: 048
  2. ACCURETIC [Concomitant]
     Dosage: 20/25 MG, UNK
  3. ARTHROTEC [Concomitant]
     Dosage: 75MG/200MCG, UNK
  4. LIPITOR [Concomitant]
     Dosage: UNK
  5. FLAGYL [Concomitant]
     Dosage: UNK

REACTIONS (3)
  - Weight decreased [Unknown]
  - Blood pressure decreased [Unknown]
  - Malaise [Unknown]
